FAERS Safety Report 14310829 (Version 5)
Quarter: 2019Q1

REPORT INFORMATION
  Report Type: Report from Study
  Country: DE (occurrence: DE)
  Receive Date: 20171220
  Receipt Date: 20190330
  Transmission Date: 20190417
  Serious: Yes (Hospitalization, Other)
  Sender: FDA-Public Use
  Company Number: PHHY2015DE015211

PATIENT
  Age: 60 Year
  Sex: Female
  Weight: 97.5 kg

DRUGS (17)
  1. LATANOPROST. [Concomitant]
     Active Substance: LATANOPROST
     Indication: EYE DISORDER
     Dosage: 1 UG/LITRE (DAILY DOSE: 1 DF DOSAGE FORM EVERY DAY)
     Route: 065
     Dates: start: 20110224
  2. ZOMETA [Concomitant]
     Active Substance: ZOLEDRONIC ACID
     Indication: PRODUCT USED FOR UNKNOWN INDICATION
     Dosage: 40 OT, UNK (EVERY HALF A YEAR, LAST ADMINISTRATION WAS ON 27 JUN 15)
     Route: 065
     Dates: start: 20101201, end: 20150627
  3. AFINITOR [Suspect]
     Active Substance: EVEROLIMUS
     Indication: BREAST CANCER METASTATIC
     Dosage: 5 MG, QD
     Route: 048
     Dates: start: 20150411, end: 20150703
  4. MAGNESIUM [Concomitant]
     Active Substance: MAGNESIUM
     Indication: PRODUCT USED FOR UNKNOWN INDICATION
     Dosage: 300 MG, QD (1-0-0)
     Route: 065
     Dates: start: 20130314
  5. ADVANTAN [Concomitant]
     Active Substance: METHYLPREDNISOLONE ACEPONATE
     Dosage: 4 OT, UNK  (IN THE MORNING AND EVENING)
     Route: 065
     Dates: start: 20141120
  6. HYDROCORTISONE. [Concomitant]
     Active Substance: HYDROCORTISONE
     Indication: PRODUCT USED FOR UNKNOWN INDICATION
     Dosage: 5 OT, UNK (IN THE MORNING AND EVENING)
     Route: 065
     Dates: start: 20140401, end: 20150828
  7. HYDROCORTISONE. [Concomitant]
     Active Substance: HYDROCORTISONE
     Dosage: 5 OT, UNK (IN THE MORNING AND EVENING)
     Route: 065
     Dates: start: 20141111
  8. EXEMESTAN 1 A PHARMA [Suspect]
     Active Substance: EXEMESTANE
     Dosage: 5 OT, BID
     Route: 065
     Dates: start: 20141111, end: 20150828
  9. PHYSIOGEL [Concomitant]
     Indication: DYSGEUSIA
     Dosage: UNK, BID (IN THE MORNING AND IN THE EVENING)
     Route: 061
     Dates: start: 20141111, end: 20150713
  10. AFINITOR [Suspect]
     Active Substance: EVEROLIMUS
     Indication: CHEMOTHERAPY MULTIPLE AGENTS SYSTEMIC
     Dosage: 5 MG, QD
     Route: 048
     Dates: start: 20150324, end: 20150401
  11. AFINITOR [Suspect]
     Active Substance: EVEROLIMUS
     Indication: BREAST CANCER METASTATIC
     Dosage: 10 MG (0-1-0), QD
     Route: 048
     Dates: start: 20141020, end: 20150201
  12. METOPROLOL. [Concomitant]
     Active Substance: METOPROLOL
     Indication: PRODUCT USED FOR UNKNOWN INDICATION
     Dosage: 47.5 MG, QD (0.5-0-0)
     Route: 065
     Dates: start: 20110909
  13. ADVANTAN [Concomitant]
     Active Substance: METHYLPREDNISOLONE ACEPONATE
     Indication: PRODUCT USED FOR UNKNOWN INDICATION
     Dosage: 0.5 %, UNK,  (IN THE MORNING AND EVENING)
     Route: 065
     Dates: start: 20141106
  14. AFINITOR [Suspect]
     Active Substance: EVEROLIMUS
     Dosage: 5 MG, QD
     Route: 048
     Dates: start: 20150822, end: 20150828
  15. EXEMESTAN 1 A PHARMA [Suspect]
     Active Substance: EXEMESTANE
     Indication: BREAST CANCER METASTATIC
     Dosage: 25 MG, QD (0-1-0)
     Route: 048
     Dates: start: 20141020, end: 20150828
  16. PANTOZOL [Concomitant]
     Active Substance: PANTOPRAZOLE SODIUM
     Indication: PRODUCT USED FOR UNKNOWN INDICATION
     Dosage: 40 MG, QD
     Route: 065
     Dates: start: 20150303
  17. TRAMADOL. [Concomitant]
     Active Substance: TRAMADOL
     Indication: PRODUCT USED FOR UNKNOWN INDICATION
     Dosage: 20 OT, UNK
     Route: 065
     Dates: start: 20150303

REACTIONS (20)
  - Nasopharyngitis [Recovered/Resolved]
  - Pneumonitis [Recovered/Resolved]
  - Diabetes mellitus inadequate control [Recovered/Resolved]
  - Blood glucose increased [Recovering/Resolving]
  - Oxygen saturation decreased [Unknown]
  - Cough [Recovered/Resolved]
  - Skin burning sensation [Recovered/Resolved]
  - Rash [Recovered/Resolved]
  - Dysgeusia [Recovered/Resolved]
  - Blood cholesterol increased [Recovered/Resolved]
  - Pneumonitis [Recovered/Resolved]
  - PO2 decreased [Unknown]
  - Wheezing [Recovered/Resolved]
  - C-reactive protein increased [Unknown]
  - Cough [Recovered/Resolved]
  - Stomatitis [Recovered/Resolved]
  - Cough [Recovered/Resolved]
  - Grunting [Recovered/Resolved]
  - Lung infiltration [Recovered/Resolved]
  - Pruritus [Recovered/Resolved]

NARRATIVE: CASE EVENT DATE: 20141106
